FAERS Safety Report 5281878-9 (Version None)
Quarter: 2007Q1

REPORT INFORMATION
  Report Type: 
  Country: None (occurrence: None)
  Receive Date: 20070330
  Receipt Date: 20070326
  Transmission Date: 20070707
  Serious: Yes (Other)
  Sender: FDA-Public Use
  Company Number: JP-BRISTOL-MYERS SQUIBB COMPANY-13643986

PATIENT
  Age: 57 Year
  Sex: Female

DRUGS (9)
  1. BARACLUDE [Suspect]
     Indication: HEPATITIS B
     Route: 048
     Dates: start: 20060921
  2. LAMIVUDINE [Suspect]
     Dates: start: 20060613, end: 20060920
  3. ALDACTONE [Concomitant]
     Route: 048
  4. ALFAROL [Concomitant]
     Route: 048
  5. LIVACT [Concomitant]
     Route: 048
  6. BIOFERMIN [Concomitant]
     Route: 048
  7. MUCOSTA [Concomitant]
     Route: 048
  8. GLAKAY [Concomitant]
     Route: 048
     Dates: start: 20060307
  9. MONILAC [Concomitant]
     Route: 048

REACTIONS (1)
  - LEUKOPENIA [None]
